FAERS Safety Report 7874703-0 (Version None)
Quarter: 2011Q4

REPORT INFORMATION
  Report Type: 
  Country: None (occurrence: None)
  Receive Date: 20111031
  Receipt Date: 20111027
  Transmission Date: 20120403
  Serious: Yes (Other)
  Sender: FDA-Public Use
  Company Number: FR-US-EMD SERONO, INC.-7085435

PATIENT
  Sex: Female

DRUGS (4)
  1. VITAMIN D [Concomitant]
     Indication: OSTEOPOROSIS
  2. OROCAL [Concomitant]
     Indication: OSTEOPOROSIS
  3. ACETAMINOPHEN W/ PROPOXYPHENE HCL [Concomitant]
     Indication: PRODUCT USED FOR UNKNOWN INDICATION
     Dosage: 1 GRAM BEFORE INJECTION AND 1 GRAM THE MORNING FOLLOWING REBIF INJECTION
  4. REBIF [Suspect]
     Indication: MULTIPLE SCLEROSIS
     Route: 058
     Dates: start: 19990801

REACTIONS (3)
  - ARTERIOSCLEROTIC RETINOPATHY [None]
  - INFLUENZA LIKE ILLNESS [None]
  - HYPERTENSION [None]
